FAERS Safety Report 5051216-5 (Version None)
Quarter: 2006Q3

REPORT INFORMATION
  Report Type: 
  Country: None (occurrence: None)
  Receive Date: 20060710
  Receipt Date: 20060627
  Transmission Date: 20061208
  Serious: Yes (Hospitalization)
  Sender: FDA-Public Use
  Company Number: SU-2006-004988

PATIENT
  Age: 52 Year
  Sex: Male
  Weight: 122.4712 kg

DRUGS (5)
  1. BENICAR [Suspect]
     Indication: HYPERTENSION
     Dosage: 40 MG QD PO
     Route: 048
     Dates: start: 20020822, end: 20060526
  2. SULAR [Suspect]
     Indication: BLOOD PRESSURE
     Dosage: 20 MG QM PO
     Route: 048
     Dates: start: 20050613, end: 20050615
  3. HYDROCODONE BITARTRATE + ACETAMINOPHEN [Concomitant]
  4. ADVIL [Concomitant]
  5. HYDROCHLOROTHIAZIDE [Concomitant]

REACTIONS (7)
  - AGGRESSION [None]
  - BLOOD PRESSURE DECREASED [None]
  - DIZZINESS [None]
  - DYSSTASIA [None]
  - PAINFUL ERECTION [None]
  - PENILE HAEMORRHAGE [None]
  - SURGERY [None]
